FAERS Safety Report 16267069 (Version 1)
Quarter: 2019Q2

REPORT INFORMATION
  Report Type: Spontaneous
  Country: DK (occurrence: DK)
  Receive Date: 20190502
  Receipt Date: 20190502
  Transmission Date: 20190711
  Serious: Yes (Hospitalization)
  Sender: FDA-Public Use
  Company Number: DK-009507513-1904DNK012278

PATIENT
  Age: 81 Year
  Sex: Female

DRUGS (11)
  1. ACETAMINOPHEN. [Concomitant]
     Active Substance: ACETAMINOPHEN
     Indication: PAIN
     Dosage: STRENGTH: 500 MG DOSE: 2 TABLETS (1000 MILLIGRAM) AS NECESSARY, MAXIMUM 4 TIMES DAILY
     Route: 048
     Dates: start: 20190101
  2. DOMPERIDONE [Concomitant]
     Active Substance: DOMPERIDONE
     Indication: ADVERSE DRUG REACTION
     Dosage: STRENGTH: 10 MG DOSE: 1 TABLET AS NECESSARY, MAXIMUM 3 TIMES DAILY
     Route: 048
     Dates: start: 20190214
  3. FORMOTEROL FUMARATE [Concomitant]
     Active Substance: FORMOTEROL FUMARATE
     Indication: ASTHMA
     Dosage: STRENGTH: 4.5 MCG/DOSE DOSE: 1 INHALATION, TWICE (2) DAILY AS NECESSARY
     Route: 055
     Dates: start: 20150806
  4. KEYTRUDA [Suspect]
     Active Substance: PEMBROLIZUMAB
     Indication: MALIGNANT NEOPLASM OF RENAL PELVIS
     Dosage: STRENGTH: 25 MG/ML
     Route: 042
     Dates: start: 20190214
  5. UNIKALK FORTE [Concomitant]
     Indication: VITAMIN SUPPLEMENTATION
     Dosage: STRENGTH: 400 MILLIGRAMS (MG) + 19 MICROGRAMS (MCG)
     Route: 048
     Dates: start: 20190225
  6. MORPHINE [Concomitant]
     Active Substance: MORPHINE
     Indication: COUGH
     Dosage: STRENGTH: 20 MG/ML DOSE: 5 DROPS AS NECESSARY, MAXIMUM 4 TIMES DAILY
     Route: 048
     Dates: start: 20190228
  7. BENDROFLUMETHIAZIDE (+) POTASSIUM CHLORIDE [Concomitant]
     Indication: HYPERTENSION
     Dosage: STRENGTH: 1.25 + 573 MG
     Route: 048
     Dates: start: 20181210
  8. PANTOPRAZOLE [Concomitant]
     Active Substance: PANTOPRAZOLE
     Indication: PROPHYLAXIS AGAINST GASTROINTESTINAL ULCER
     Dosage: STRENGTH: 40 MG
     Route: 048
     Dates: start: 20190305
  9. TINZAPARIN SODIUM [Concomitant]
     Active Substance: TINZAPARIN SODIUM
     Indication: PULMONARY EMBOLISM
     Dosage: STRENGTH: 8.000 ANTI XA IU
     Route: 058
     Dates: start: 20190309
  10. ENALAPRIL [Concomitant]
     Active Substance: ENALAPRIL
     Indication: BLOOD PRESSURE MEASUREMENT
     Dosage: STRENGTH: 20 MG
     Route: 048
     Dates: start: 20181108
  11. PREDNISOLONE. [Concomitant]
     Active Substance: PREDNISOLONE
     Indication: ADRENOCORTICAL STEROID THERAPY
     Dosage: STRENGTH: 25 MG + 5 MG
     Route: 048
     Dates: start: 20190308

REACTIONS (3)
  - Renal failure [Not Recovered/Not Resolved]
  - Blood urea increased [Not Recovered/Not Resolved]
  - Blood creatinine increased [Not Recovered/Not Resolved]

NARRATIVE: CASE EVENT DATE: 201903
